FAERS Safety Report 7506012-3 (Version None)
Quarter: 2011Q2

REPORT INFORMATION
  Report Type: 
  Country: None (occurrence: None)
  Receive Date: 20110411
  Receipt Date: 20100513
  Transmission Date: 20111010
  Serious: Yes (Hospitalization)
  Sender: FDA-Public Use
  Company Number: AE 2010-042

PATIENT
  Age: 57 Year
  Sex: Female

DRUGS (14)
  1. VENTOLIN DS [Concomitant]
  2. PREVACID [Concomitant]
  3. LACTULOSE [Concomitant]
  4. DOCUSATE SODIUM [Concomitant]
  5. ATIVAN [Concomitant]
  6. LAMICTAL [Concomitant]
  7. POTASSIUM CL [Concomitant]
  8. METOCLOPRAMIDE [Concomitant]
  9. LASIX [Concomitant]
  10. COGENTIN [Concomitant]
  11. PREMARIN [Concomitant]
  12. FAZACLO ODT [Suspect]
     Indication: SCHIZOAFFECTIVE DISORDER
     Dosage: 200MG PO DAILY
     Route: 048
     Dates: start: 20070901, end: 20100303
  13. ZOLOFT [Concomitant]
  14. PROLIXIN [Concomitant]

REACTIONS (6)
  - VOMITING [None]
  - DROOLING [None]
  - ILEUS [None]
  - DIARRHOEA [None]
  - MUSCULOSKELETAL CHEST PAIN [None]
  - CONSTIPATION [None]
